FAERS Safety Report 16408311 (Version 1)
Quarter: 2019Q2

REPORT INFORMATION
  Report Type: Report from Study
  Country: DE (occurrence: DE)
  Receive Date: 20190610
  Receipt Date: 20190610
  Transmission Date: 20190711
  Serious: Yes (Other)
  Sender: FDA-Public Use
  Company Number: DE-AMGEN-DEUNI2019089242

PATIENT
  Age: 14 Year
  Sex: Female

DRUGS (2)
  1. TOCILIZUMAB. [Suspect]
     Active Substance: TOCILIZUMAB
     Indication: JUVENILE IDIOPATHIC ARTHRITIS
     Dosage: 590 MILLIGRAM
     Route: 065
     Dates: start: 20160617
  2. ETANERCEPT [Suspect]
     Active Substance: ETANERCEPT
     Indication: JUVENILE IDIOPATHIC ARTHRITIS
     Dosage: 35 MILLIGRAM
     Route: 065
     Dates: start: 20151101, end: 20160512

REACTIONS (1)
  - Injury [Not Recovered/Not Resolved]

NARRATIVE: CASE EVENT DATE: 20160801
